FAERS Safety Report 12845034 (Version 2)
Quarter: 2021Q1

REPORT INFORMATION
  Report Type: Spontaneous
  Country: US (occurrence: US)
  Receive Date: 20161013
  Receipt Date: 20210105
  Transmission Date: 20210419
  Serious: No
  Sender: FDA-Public Use
  Company Number: US-009507513-1609USA013433

PATIENT
  Age: 29 Year
  Sex: Female
  Weight: 65.31 kg

DRUGS (3)
  1. NEXPLANON [Suspect]
     Active Substance: ETONOGESTREL
     Dosage: 1 ROD EVERY THREE YEARS, SECOND NEXPLANON
     Route: 059
     Dates: start: 20160922
  2. NEXPLANON [Suspect]
     Active Substance: ETONOGESTREL
     Indication: CONTRACEPTION
     Dosage: UNK
  3. NEXPLANON [Suspect]
     Active Substance: ETONOGESTREL
     Dosage: 1 DOSAGE FORM (IMPLANT), DOSE ALSO REPORTED AS 68 MILLIGRAM, FREQUENCY REPORTED AS ONCE
     Route: 059
     Dates: start: 201910

REACTIONS (3)
  - Product quality issue [Unknown]
  - Complication associated with device [Recovered/Resolved]
  - Menstruation irregular [Unknown]

NARRATIVE: CASE EVENT DATE: 20160922
